FAERS Safety Report 7968379-1 (Version None)
Quarter: 2011Q4

REPORT INFORMATION
  Report Type: 
  Country: None (occurrence: None)
  Receive Date: 20111209
  Receipt Date: 20111206
  Transmission Date: 20120403
  Serious: Yes (Other)
  Sender: FDA-Public Use
  Company Number: BR-BAYER-2011-117616

PATIENT
  Sex: Female

DRUGS (1)
  1. ESTRADIOL VALERATE/DIENOGEST [Suspect]
     Dosage: UNK
     Dates: end: 20110101

REACTIONS (6)
  - RASH [None]
  - SKIN BURNING SENSATION [None]
  - BLISTER [None]
  - DERMATITIS ALLERGIC [None]
  - RASH PUSTULAR [None]
  - PRURITUS [None]
